FAERS Safety Report 4915331-6 (Version None)
Quarter: 2006Q1

REPORT INFORMATION
  Report Type: 
  Country: None (occurrence: None)
  Receive Date: 20060216
  Receipt Date: 20060216
  Transmission Date: 20060701
  Serious: Yes (Life-Threatening, Disabling, Other)
  Sender: FDA-Public Use
  Company Number: None

PATIENT
  Sex: Male
  Weight: 78.4723 kg

DRUGS (3)
  1. RISPERDAL [Suspect]
     Indication: BIPOLAR DISORDER
     Dosage: 1 TOO 2 MG  EVERY EVENING
     Dates: start: 20000701, end: 20050901
  2. BENZOTROPINE (1MG) [Suspect]
     Indication: BIPOLAR DISORDER
     Dosage: 1 MG EVERY EVENING
     Dates: start: 19941001, end: 20000701
  3. HALDOL [Suspect]
     Indication: BIPOLAR DISORDER
     Dosage: 100 MG ONCE A MONTH
     Dates: start: 19941001, end: 20000701

REACTIONS (24)
  - ANOREXIA [None]
  - ARTHRITIS [None]
  - BLOOD DISORDER [None]
  - CARDIAC MURMUR [None]
  - CONFUSIONAL STATE [None]
  - CONSTIPATION [None]
  - DYSARTHRIA [None]
  - FATIGUE [None]
  - GINGIVAL BLEEDING [None]
  - HEART RATE DECREASED [None]
  - HEART RATE INCREASED [None]
  - HYPERSENSITIVITY [None]
  - INSOMNIA [None]
  - JAW DISORDER [None]
  - JOINT LOCK [None]
  - MUSCLE SPASMS [None]
  - PAIN [None]
  - PAIN IN EXTREMITY [None]
  - PALPITATIONS [None]
  - SPEECH DISORDER [None]
  - TARDIVE DYSKINESIA [None]
  - THINKING ABNORMAL [None]
  - VISION BLURRED [None]
  - WEIGHT INCREASED [None]
